FAERS Safety Report 8106874 (Version 2)
Quarter: 2014Q3

REPORT INFORMATION
  Report Type: Report from Study
  Country: US (occurrence: US)
  Receive Date: 20110825
  Receipt Date: 20140806
  Transmission Date: 20150326
  Serious: Yes (Hospitalization)
  Sender: FDA-Public Use
  Company Number: PHHO2011US13463

PATIENT
  Age: 72 Year
  Sex: Male

DRUGS (7)
  1. GLIPIZIDE. [Concomitant]
     Active Substance: GLIPIZIDE
     Indication: TYPE 2 DIABETES MELLITUS
     Dosage: 5 MG, BID
     Route: 048
     Dates: start: 20100922
  2. METOPROLOL [Concomitant]
     Active Substance: METOPROLOL
     Indication: CARDIAC FAILURE CONGESTIVE
     Dosage: 25 MG, QD
     Route: 048
     Dates: start: 20101201
  3. LCZ696 [Suspect]
     Active Substance: INVESTIGATIONAL PRODUCT
     Indication: CARDIAC FAILURE CHRONIC
     Dosage: 200 MG, BID
     Route: 048
     Dates: start: 20110608, end: 20110801
  4. LCZ696 [Suspect]
     Active Substance: INVESTIGATIONAL PRODUCT
     Dosage: 200 MG, BID
     Route: 048
     Dates: start: 20110805
  5. LEVOTHYROXINE [Concomitant]
     Active Substance: LEVOTHYROXINE
     Indication: HYPOTHYROIDISM
     Dosage: 0.05 MG, QD
     Route: 048
     Dates: start: 20101222
  6. FUROSEMIDE. [Concomitant]
     Active Substance: FUROSEMIDE
     Indication: CARDIAC FAILURE CONGESTIVE
     Dosage: 40 MG, BID
     Route: 048
     Dates: start: 20100731
  7. CEFAZOLIN [Suspect]
     Active Substance: CEFAZOLIN

REACTIONS (3)
  - Asthenia [Recovering/Resolving]
  - Diarrhoea [Recovered/Resolved]
  - Nausea [Recovered/Resolved]

NARRATIVE: CASE EVENT DATE: 20110803
